FAERS Safety Report 25703506 (Version 2)
Quarter: 2025Q3

REPORT INFORMATION
  Report Type: Report from Study
  Country: CA (occurrence: CA)
  Receive Date: 20250820
  Receipt Date: 20250909
  Transmission Date: 20251020
  Serious: Yes (Other)
  Sender: SANDOZ
  Company Number: CA-002147023-NVSC2022CA177929

PATIENT
  Sex: Female

DRUGS (1)
  1. HYRIMOZ [Suspect]
     Active Substance: ADALIMUMAB-ADAZ
     Indication: Psoriatic arthropathy
     Dosage: 40 MG, BIW
     Route: 058
     Dates: start: 20220529

REACTIONS (5)
  - Postoperative wound infection [Recovered/Resolved]
  - Joint swelling [Unknown]
  - Injection site inflammation [Unknown]
  - Incorrect dose administered [Unknown]
  - Product use complaint [Unknown]
